FAERS Safety Report 14891798 (Version 1)
Quarter: 2018Q2

REPORT INFORMATION
  Report Type: Report from Study
  Country: US (occurrence: US)
  Receive Date: 20180514
  Receipt Date: 20180514
  Transmission Date: 20180711
  Serious: Yes (Other)
  Sender: FDA-Public Use
  Company Number: US-BAYER-2018-074611

PATIENT
  Age: 83 Year
  Sex: Male

DRUGS (3)
  1. STIVARGA [Suspect]
     Active Substance: REGORAFENIB
     Indication: COLON CANCER
     Dosage: DAILY DOSE 120 MG
     Route: 048
     Dates: start: 20180421
  2. STIVARGA [Suspect]
     Active Substance: REGORAFENIB
     Indication: COLON CANCER
     Dosage: DAILY DOSE 120 MG
     Route: 048
     Dates: start: 20180402, end: 20180412
  3. STIVARGA [Suspect]
     Active Substance: REGORAFENIB
     Indication: COLON CANCER
     Dosage: DAILY DOSE 120 MG
     Route: 048
     Dates: start: 20180413, end: 20180420

REACTIONS (20)
  - Device occlusion [Recovered/Resolved]
  - Therapeutic response unexpected [None]
  - Vomiting [Recovered/Resolved]
  - Dyspnoea exertional [None]
  - Balance disorder [None]
  - Off label use [None]
  - Dysphonia [Not Recovered/Not Resolved]
  - Device occlusion [Recovered/Resolved]
  - Lymphadenopathy [Not Recovered/Not Resolved]
  - Stomatitis [Recovered/Resolved]
  - Abdominal rigidity [Recovered/Resolved]
  - Pre-existing condition improved [Recovering/Resolving]
  - Urinary retention [Recovered/Resolved]
  - Paraesthesia oral [Not Recovered/Not Resolved]
  - Balance disorder [Not Recovered/Not Resolved]
  - Urinary incontinence [Recovered/Resolved]
  - Blood pressure increased [None]
  - Abdominal pain upper [Recovering/Resolving]
  - Drug dose omission [Recovered/Resolved]
  - Asthenia [Not Recovered/Not Resolved]

NARRATIVE: CASE EVENT DATE: 201804
